FAERS Safety Report 24924026 (Version 1)
Quarter: 2025Q1

REPORT INFORMATION
  Report Type: Spontaneous
  Country: MX (occurrence: MX)
  Receive Date: 20250204
  Receipt Date: 20250204
  Transmission Date: 20250409
  Serious: Yes (Hospitalization, Other)
  Sender: SANDOZ
  Company Number: MX-002147023-NVSC2024MX097668

PATIENT
  Age: 54 Year
  Sex: Female
  Weight: 54 kg

DRUGS (14)
  1. KISQALI [Suspect]
     Active Substance: RIBOCICLIB
     Dosage: 3 DOSAGE FORM (200 MG), QD
     Route: 048
     Dates: start: 20230901
  2. KISQALI [Suspect]
     Active Substance: RIBOCICLIB
     Dosage: 2 DOSAGE FORM, QD (2 DOSAGE FORM OF 200 MG)
     Route: 048
     Dates: start: 2023
  3. KISQALI [Suspect]
     Active Substance: RIBOCICLIB
     Dosage: 2 DOSAGE FORM, QD (2 TABLET OF 200 MG)
     Route: 048
     Dates: start: 20241028
  4. KISQALI [Suspect]
     Active Substance: RIBOCICLIB
     Dosage: 2 DOSAGE FORM, QD (2 TABLET OF 200 MG)
     Route: 048
     Dates: start: 202410
  5. KISQALI [Suspect]
     Active Substance: RIBOCICLIB
     Dosage: 3 DOSAGE FORM (200 MG), QD
     Route: 048
     Dates: start: 2023, end: 20241027
  6. KISQALI [Suspect]
     Active Substance: RIBOCICLIB
     Dosage: 3 DOSAGE FORM, QD (AT NIGHT)
     Route: 048
     Dates: start: 202305
  7. KISQALI [Suspect]
     Active Substance: RIBOCICLIB
     Dosage: 2 DOSAGE FORM (200 MG), QD
     Route: 048
     Dates: start: 20250112
  8. KISQALI [Suspect]
     Active Substance: RIBOCICLIB
     Dosage: 2 DOSAGE FORM (200 MG), QD
     Route: 048
     Dates: start: 2023
  9. KISQALI [Suspect]
     Active Substance: RIBOCICLIB
     Indication: Breast cancer recurrent
     Dosage: 3 DOSAGE FORM (200 MG), QD
     Route: 048
     Dates: start: 202312, end: 20250122
  10. KISQALI [Suspect]
     Active Substance: RIBOCICLIB
     Indication: Breast cancer
     Dosage: 3 TABLET OF 200 MG, QD
     Route: 048
     Dates: start: 202303
  11. ZOLEDRONIC ACID [Suspect]
     Active Substance: ZOLEDRONIC ACID
     Indication: Bone disorder
     Route: 042
     Dates: start: 202303
  12. FULVESTRANT [Concomitant]
     Active Substance: FULVESTRANT
     Indication: Breast cancer
     Route: 030
     Dates: start: 202303, end: 20250112
  13. FULVESTRANT [Concomitant]
     Active Substance: FULVESTRANT
     Indication: Recurrent cancer
  14. NETUPITANT\PALONOSETRON [Concomitant]
     Active Substance: NETUPITANT\PALONOSETRON
     Indication: Nausea
     Dosage: 1 DOSAGE FORM (300/ 0.5 MG), QD, CAPSULE
     Route: 048
     Dates: start: 202501

REACTIONS (28)
  - Psychotic behaviour [Unknown]
  - Psychotic disorder [Recovering/Resolving]
  - Condition aggravated [Not Recovered/Not Resolved]
  - Major depression [Recovering/Resolving]
  - Epileptic psychosis [Not Recovered/Not Resolved]
  - Hepatic cancer [Not Recovered/Not Resolved]
  - Bone cancer [Not Recovered/Not Resolved]
  - Neck mass [Not Recovered/Not Resolved]
  - Hair growth abnormal [Not Recovered/Not Resolved]
  - Pigmentation disorder [Recovered/Resolved]
  - Mood altered [Recovered/Resolved]
  - Stress [Recovering/Resolving]
  - Somatic symptom disorder [Unknown]
  - Decreased immune responsiveness [Recovering/Resolving]
  - Osteoporosis [Recovering/Resolving]
  - Platelet count decreased [Not Recovered/Not Resolved]
  - White blood cell count decreased [Unknown]
  - Oropharyngeal discomfort [Recovered/Resolved]
  - Blood urea abnormal [Unknown]
  - Gait disturbance [Recovered/Resolved]
  - Fatigue [Recovering/Resolving]
  - Anxiety [Recovered/Resolved]
  - Alopecia [Recovered/Resolved]
  - Anaemia [Recovering/Resolving]
  - Red blood cell count decreased [Unknown]
  - Pain in extremity [Recovering/Resolving]
  - Weight increased [Recovered/Resolved]
  - Weight decreased [Not Recovered/Not Resolved]

NARRATIVE: CASE EVENT DATE: 20230301
